FAERS Safety Report 17410881 (Version 1)
Quarter: 2020Q1

REPORT INFORMATION
  Report Type: Spontaneous
  Country: CN (occurrence: CN)
  Receive Date: 20200212
  Receipt Date: 20200212
  Transmission Date: 20200409
  Serious: Yes (Hospitalization)
  Sender: FDA-Public Use
  Company Number: CN-BAXTER-2020BAX002634

PATIENT
  Age: 5 Year
  Sex: Male
  Weight: 16.2 kg

DRUGS (25)
  1. 0.9% SODIUM CHLORIDE INJECTION [Suspect]
     Active Substance: SODIUM CHLORIDE
     Dosage: DOXORUBICIN + 0.9% NS, DAY 1-3
     Route: 041
     Dates: start: 20200115, end: 20200117
  2. 0.9% SODIUM CHLORIDE INJECTION [Suspect]
     Active Substance: SODIUM CHLORIDE
     Dosage: ONDANSETRON + 0.9% NS, DAY 1-3
     Route: 042
     Dates: start: 20200115, end: 20200117
  3. ONDANSETRON HYDROCHLORIDE. [Suspect]
     Active Substance: ONDANSETRON HYDROCHLORIDE
     Dosage: ONDANSETRON + 0.9% NS; DOSE RE-INTRODUCED
     Route: 042
  4. HOLOXAN [Suspect]
     Active Substance: IFOSFAMIDE
     Dosage: IFOSFAMIDE + 0.9% NS; DOSE RE-INTRODUCED
     Route: 041
  5. VINCRISTINE SULFATE. [Suspect]
     Active Substance: VINCRISTINE SULFATE
     Dosage: VINCRISTINE + 0.9% NS; DOSE RE-INTRODUCED
     Route: 042
  6. 0.9% SODIUM CHLORIDE INJECTION [Suspect]
     Active Substance: SODIUM CHLORIDE
     Indication: MEDICATION DILUTION
     Dosage: IFOSFAMIDE + 0.9% NS, DAY 1-3
     Route: 041
     Dates: start: 20200115, end: 20200117
  7. 0.9% SODIUM CHLORIDE INJECTION [Suspect]
     Active Substance: SODIUM CHLORIDE
     Dosage: IFOSFAMIDE + 0.9% NS; DOSE RE-INTRODUCED
     Route: 041
  8. DEXAMETHASONE SODIUM PHOSPHATE. [Suspect]
     Active Substance: DEXAMETHASONE SODIUM PHOSPHATE
     Dosage: DOSE RE-INTRODUCED
     Route: 042
  9. MESNA. [Suspect]
     Active Substance: MESNA
     Indication: PROPHYLAXIS
     Dosage: DAY 1-3
     Route: 042
     Dates: start: 20200115, end: 20200117
  10. MESNA. [Suspect]
     Active Substance: MESNA
     Dosage: DOSE RE-INTRODUCED
     Route: 042
  11. ONDANSETRON HYDROCHLORIDE. [Suspect]
     Active Substance: ONDANSETRON HYDROCHLORIDE
     Indication: VOMITING
     Dosage: ONDANSETRON + 0.9% NS, DAY 1-3
     Route: 042
     Dates: start: 20200115, end: 20200117
  12. 0.9% SODIUM CHLORIDE INJECTION [Suspect]
     Active Substance: SODIUM CHLORIDE
     Dosage: ONDANSETRON+ 0.9% NS; DOSE RE-INTRODUCED
     Route: 042
  13. HOLOXAN [Suspect]
     Active Substance: IFOSFAMIDE
     Indication: PRIMITIVE NEUROECTODERMAL TUMOUR
     Dosage: IFOSFAMIDE + 0.9% NS, DAY 1-3
     Route: 041
     Dates: start: 20200115, end: 20200117
  14. 0.9% SODIUM CHLORIDE INJECTION [Suspect]
     Active Substance: SODIUM CHLORIDE
     Dosage: DOXORUBICIN + 0.9% NS; DOSE RE-INTRODUCED
     Route: 041
  15. 0.9% SODIUM CHLORIDE INJECTION [Suspect]
     Active Substance: SODIUM CHLORIDE
     Dosage: VINCRISTINE + 0.9% NS; DOSE RE-INTRODUCED
     Route: 042
  16. ETOPOSIDE. [Suspect]
     Active Substance: ETOPOSIDE
     Indication: PRIMITIVE NEUROECTODERMAL TUMOUR
     Dosage: ETOPOSIDE + 0.9% NS, DAY 1-3
     Route: 041
     Dates: start: 20200115, end: 20200117
  17. ETOPOSIDE. [Suspect]
     Active Substance: ETOPOSIDE
     Dosage: ETOPOSIDE + 0.9% NS; DOSE RE-INTRODUCED
     Route: 041
  18. DOXORUBICIN HYDROCHLORIDE. [Suspect]
     Active Substance: DOXORUBICIN HYDROCHLORIDE
     Dosage: DOXORUBICIN + 0.9% NS; DOSE RE-INTRODUCED
     Route: 041
  19. PEGYLATED RECOMBINANT HUMAN GRANULOCYTE STIMULATING FACTOR [Concomitant]
     Indication: PROPHYLAXIS
     Route: 058
     Dates: start: 20200119
  20. 0.9% SODIUM CHLORIDE INJECTION [Suspect]
     Active Substance: SODIUM CHLORIDE
     Dosage: ETOPOSIDE + 0.9% NS, DAY 1-3
     Route: 041
     Dates: start: 20200115, end: 20200117
  21. DOXORUBICIN HYDROCHLORIDE. [Suspect]
     Active Substance: DOXORUBICIN HYDROCHLORIDE
     Indication: PRIMITIVE NEUROECTODERMAL TUMOUR
     Dosage: DOXORUBICIN + 0.9% NS, DAY 1-3
     Route: 041
     Dates: start: 20200115, end: 20200117
  22. VINCRISTINE SULFATE. [Suspect]
     Active Substance: VINCRISTINE SULFATE
     Indication: PRIMITIVE NEUROECTODERMAL TUMOUR
     Dosage: VINCRISTINE + 0.9% NS, DAY 1
     Route: 042
     Dates: start: 20200115, end: 20200115
  23. DEXAMETHASONE SODIUM PHOSPHATE. [Suspect]
     Active Substance: DEXAMETHASONE SODIUM PHOSPHATE
     Indication: VOMITING
     Dosage: DAY 1-3
     Route: 042
     Dates: start: 20200115, end: 20200117
  24. 0.9% SODIUM CHLORIDE INJECTION [Suspect]
     Active Substance: SODIUM CHLORIDE
     Dosage: ETOPOSIDE + 0.9% NS; DOSE RE-INTRODUCED
     Route: 041
  25. 0.9% SODIUM CHLORIDE INJECTION [Suspect]
     Active Substance: SODIUM CHLORIDE
     Indication: MEDICATION DILUTION
     Dosage: VINCRISTINE + 0.9% NS, DAY 1
     Route: 042
     Dates: start: 20200115, end: 20200115

REACTIONS (2)
  - Cytopenia [Recovering/Resolving]
  - Pyrexia [Recovering/Resolving]

NARRATIVE: CASE EVENT DATE: 20200125
